FAERS Safety Report 14419136 (Version 8)
Quarter: 2019Q1

REPORT INFORMATION
  Report Type: Spontaneous
  Country: CA (occurrence: CA)
  Receive Date: 20180122
  Receipt Date: 20190131
  Transmission Date: 20190417
  Serious: Yes (Other)
  Sender: FDA-Public Use
  Company Number: CA-CELLTRION INC.-2017CA013006

PATIENT

DRUGS (12)
  1. INFLECTRA [Suspect]
     Active Substance: INFLIXIMAB-DYYB
     Dosage: 400 MG, (EVERY 0, 2 WEEKS, THEN EVERY 4 WEEKS)
     Route: 042
     Dates: start: 20180110
  2. PREDNISONE. [Suspect]
     Active Substance: PREDNISONE
     Dosage: 40 MG, UNK
     Route: 065
  3. INFLECTRA [Suspect]
     Active Substance: INFLIXIMAB-DYYB
     Dosage: 600 MG, (EVERY 0, 2 WEEKS, THEN EVERY 4 WEEKS)
     Route: 042
     Dates: start: 20180313
  4. PREDNISONE. [Suspect]
     Active Substance: PREDNISONE
     Dosage: 15 MG, UNK
     Route: 065
  5. INFLECTRA [Suspect]
     Active Substance: INFLIXIMAB-DYYB
     Dosage: 600 MG, (EVERY 0, 2 WEEKS, THEN EVERY 4 WEEKS)
     Route: 042
     Dates: start: 20180123
  6. METHOTREXATE. [Concomitant]
     Active Substance: METHOTREXATE
     Indication: COLITIS ULCERATIVE
     Dosage: 15 MG, WEEKLY
  7. INFLECTRA [Suspect]
     Active Substance: INFLIXIMAB-DYYB
     Dosage: 600 MG, (EVERY 0, 2 WEEKS, THEN EVERY 4 WEEKS)
     Route: 042
     Dates: start: 20180206
  8. INFLECTRA [Suspect]
     Active Substance: INFLIXIMAB-DYYB
     Dosage: 400 MG, (0, 2 WEEKS, THEN EVERY 4 WEEKS)
     Route: 042
     Dates: start: 20171101
  9. INFLECTRA [Suspect]
     Active Substance: INFLIXIMAB-DYYB
     Dosage: 600 MG, (EVERY 0, 2 WEEKS, THEN EVERY 4 WEEKS)
     Route: 042
     Dates: start: 20180822
  10. TRAMADOL. [Concomitant]
     Active Substance: TRAMADOL
     Dosage: UNK, AS NEEDED
     Route: 065
  11. INFLECTRA [Suspect]
     Active Substance: INFLIXIMAB-DYYB
     Indication: COLITIS ULCERATIVE
     Dosage: 400 MG, (0, 2 WEEKS, THEN EVERY 4 WEEKS)
     Route: 042
     Dates: start: 20170905, end: 20180110
  12. INFLECTRA [Suspect]
     Active Substance: INFLIXIMAB-DYYB
     Dosage: 400 MG (0, 2 WEEKS, THEN EVERY 4 WEEKS)
     Route: 042
     Dates: start: 20171211

REACTIONS (7)
  - Heart rate irregular [Unknown]
  - Product use issue [Unknown]
  - Product use issue [Unknown]
  - Weight fluctuation [Unknown]
  - Condition aggravated [Recovering/Resolving]
  - Weight decreased [Unknown]
  - Drug ineffective [Recovering/Resolving]

NARRATIVE: CASE EVENT DATE: 2017
